FAERS Safety Report 24719907 (Version 2)
Quarter: 2025Q1

REPORT INFORMATION
  Report Type: Report from Study
  Country: US (occurrence: US)
  Receive Date: 20241211
  Receipt Date: 20250105
  Transmission Date: 20250408
  Serious: No
  Sender: ROCHE
  Company Number: US-ROCHE-10000150164

PATIENT
  Age: 66 Year
  Sex: Female

DRUGS (18)
  1. OCREVUS [Suspect]
     Active Substance: OCRELIZUMAB
     Indication: Congenital neuropathy
     Dosage: MORE DOSAGE INFORMATION IS 300 MG SINGLE-USE VIAL
     Route: 042
  2. OCREVUS [Suspect]
     Active Substance: OCRELIZUMAB
     Indication: Relapsing multiple sclerosis
  3. ACETAMINOPHEN [Concomitant]
     Active Substance: ACETAMINOPHEN
  4. ALBUTEROL [Concomitant]
     Active Substance: ALBUTEROL
  5. ATENOLOL [Concomitant]
     Active Substance: ATENOLOL
  6. CALCIUM CARBONATE\CHOLECALCIFEROL [Concomitant]
     Active Substance: CALCIUM CARBONATE\CHOLECALCIFEROL
  7. CARBAMAZEPINE [Concomitant]
     Active Substance: CARBAMAZEPINE
  8. ERGOCALCIFEROL [Concomitant]
     Active Substance: ERGOCALCIFEROL
  9. FLUTICASONE PROPIONATE [Concomitant]
     Active Substance: FLUTICASONE PROPIONATE
  10. FUROSEMIDE [Concomitant]
     Active Substance: FUROSEMIDE
  11. GABAPENTIN [Concomitant]
     Active Substance: GABAPENTIN
  12. MYRBETRIQ [Concomitant]
     Active Substance: MIRABEGRON
  13. LEVOTHYROXINE [Concomitant]
     Active Substance: LEVOTHYROXINE
  14. OMEPRAZOLE [Concomitant]
     Active Substance: OMEPRAZOLE
  15. POTASSIUM CHLORIDE [Concomitant]
     Active Substance: POTASSIUM CHLORIDE
  16. PRAMIPEXOLE [Concomitant]
     Active Substance: PRAMIPEXOLE
  17. PRAVASTATIN [Concomitant]
     Active Substance: PRAVASTATIN
  18. VENLAFAXINE HYDROCHLORIDE [Concomitant]
     Active Substance: VENLAFAXINE HYDROCHLORIDE

REACTIONS (20)
  - COVID-19 [Unknown]
  - Painful respiration [Unknown]
  - Headache [Unknown]
  - Neck pain [Unknown]
  - Urinary incontinence [Unknown]
  - Fatigue [Unknown]
  - Cognitive disorder [Unknown]
  - Depression [Unknown]
  - Muscular weakness [Unknown]
  - Muscular weakness [Unknown]
  - Peroneal nerve palsy [Unknown]
  - Muscle spasticity [Unknown]
  - Band sensation [Unknown]
  - Sensory loss [Unknown]
  - Fall [Unknown]
  - Paraesthesia [Unknown]
  - Uhthoff^s phenomenon [Unknown]
  - Muscle contracture [Unknown]
  - Sleep disorder [Unknown]
  - Micturition urgency [Unknown]
